FAERS Safety Report 24443138 (Version 2)
Quarter: 2024Q4

REPORT INFORMATION
  Report Type: Spontaneous
  Country: GB (occurrence: GB)
  Receive Date: 20241016
  Receipt Date: 20241017
  Transmission Date: 20250114
  Serious: No
  Sender: ROCHE
  Company Number: GB-ROCHE-3579747

PATIENT
  Age: 15 Year
  Sex: Male

DRUGS (1)
  1. EMICIZUMAB [Suspect]
     Active Substance: EMICIZUMAB
     Indication: Factor VIII deficiency
     Route: 065

REACTIONS (1)
  - Injury [Unknown]

NARRATIVE: CASE EVENT DATE: 20240213
